FAERS Safety Report 13044368 (Version 1)
Quarter: 2016Q4

REPORT INFORMATION
  Report Type: Spontaneous
  Country: US (occurrence: US)
  Receive Date: 20161220
  Receipt Date: 20161220
  Transmission Date: 20170207
  Serious: Yes (Other)
  Sender: FDA-Public Use
  Company Number: US-ROCHE-1039997

PATIENT
  Age: 63 Year
  Sex: Female
  Weight: 61.29 kg

DRUGS (1)
  1. ZELBORAF [Suspect]
     Active Substance: VEMURAFENIB
     Indication: PRODUCT USED FOR UNKNOWN INDICATION
     Route: 048
     Dates: start: 201201

REACTIONS (12)
  - Alopecia [Unknown]
  - Neuropathy peripheral [Unknown]
  - Squamous cell carcinoma [Unknown]
  - Nausea [Unknown]
  - Decreased appetite [Unknown]
  - Mass [Unknown]
  - Constipation [Unknown]
  - Chills [Unknown]
  - Diarrhoea [Unknown]
  - Arthralgia [Unknown]
  - Fatigue [Unknown]
  - Swelling [Unknown]

NARRATIVE: CASE EVENT DATE: 201205
